FAERS Safety Report 4697668-1 (Version None)
Quarter: 2005Q2

REPORT INFORMATION
  Report Type: 
  Country: None (occurrence: None)
  Receive Date: 20050622
  Receipt Date: 20050607
  Transmission Date: 20051028
  Serious: Yes (Other)
  Sender: FDA-Public Use
  Company Number: US_0405102840

PATIENT
  Age: 48 Year
  Sex: Male
  Weight: 79 kg

DRUGS (12)
  1. ZYPREXA [Suspect]
     Dosage: 15 MG DAY
     Dates: start: 20010827, end: 20030209
  2. ZOLOFT [Concomitant]
  3. DESYREL [Concomitant]
  4. REBETRON [Concomitant]
  5. INTERFERON [Concomitant]
  6. RIBAVIRIN [Concomitant]
  7. DOLOBID [Concomitant]
  8. IMFERON (IRON DEXTRAN) [Concomitant]
  9. NEXIUM [Concomitant]
  10. IBUPROFEN [Concomitant]
  11. TRAMADOL HCL [Concomitant]
  12. VALIUM [Concomitant]

REACTIONS (26)
  - ABDOMINAL PAIN [None]
  - ALCOHOLISM [None]
  - ANAEMIA [None]
  - ANXIETY [None]
  - ASTHENIA [None]
  - DIARRHOEA [None]
  - FATIGUE [None]
  - GASTRITIS [None]
  - HEPATIC CIRRHOSIS [None]
  - HEPATIC FAILURE [None]
  - HEPATIC STEATOSIS [None]
  - HEPATITIS C [None]
  - HIATUS HERNIA [None]
  - IMPRISONMENT [None]
  - INSOMNIA [None]
  - MACROCYTOSIS [None]
  - MANIA [None]
  - MURDER [None]
  - OESOPHAGITIS [None]
  - PANCYTOPENIA [None]
  - PHYSICAL ASSAULT [None]
  - SENSORY DISTURBANCE [None]
  - SUICIDAL IDEATION [None]
  - THEFT [None]
  - TREATMENT NONCOMPLIANCE [None]
  - VARICES OESOPHAGEAL [None]
